FAERS Safety Report 6262829-7 (Version None)
Quarter: 2009Q3

REPORT INFORMATION
  Report Type: 
  Country: None (occurrence: None)
  Receive Date: 20090708
  Receipt Date: 20090626
  Transmission Date: 20100115
  Serious: Yes (Hospitalization)
  Sender: FDA-Public Use
  Company Number: 8048381

PATIENT
  Sex: Female
  Weight: 3.125 kg

DRUGS (11)
  1. KEPPRA [Suspect]
     Indication: EPILEPSY
     Dosage: 1500 MG TRP
     Route: 064
  2. KEPPRA [Suspect]
     Indication: EPILEPSY
     Dosage: 2000 MG TRP
     Route: 064
  3. KEPPRA [Suspect]
     Indication: EPILEPSY
     Dosage: 1000 MG TRP
     Route: 064
     Dates: end: 20090622
  4. VITAMIN TAB [Concomitant]
  5. CLARITIN [Concomitant]
  6. ALBUTEROL [Concomitant]
  7. MUCINEX [Concomitant]
  8. GLYBURIDE [Concomitant]
  9. LANTUS [Concomitant]
  10. REPLIVA [Concomitant]
  11. ADVAIR HFA [Concomitant]

REACTIONS (2)
  - MATERNAL DRUGS AFFECTING FOETUS [None]
  - PLEURAL EFFUSION [None]
